FAERS Safety Report 6366498-7 (Version None)
Quarter: 2009Q3

REPORT INFORMATION
  Report Type: 
  Country: None (occurrence: None)
  Receive Date: 20090817
  Receipt Date: 20090507
  Transmission Date: 20100115
  Serious: Yes (Hospitalization)
  Sender: FDA-Public Use
  Company Number: 20085980

PATIENT
  Sex: Female

DRUGS (1)
  1. LIORESAL [Suspect]
     Indication: MUSCLE SPASTICITY
     Dosage: 950 MCG, DAILY, INTRATHECAL - SEE B
     Route: 037

REACTIONS (4)
  - HYPERTONIA [None]
  - PAIN [None]
  - PRURITUS [None]
  - WITHDRAWAL SYNDROME [None]
